FAERS Safety Report 10758130 (Version 1)
Quarter: 2015Q1

REPORT INFORMATION
  Report Type: Spontaneous
  Country: US (occurrence: None)
  Receive Date: 20150202
  Receipt Date: 20150202
  Transmission Date: 20150721
  Serious: No
  Sender: FDA-Public Use
  Company Number: None

PATIENT
  Age: 51 Year
  Sex: Female
  Weight: 80.74 kg

DRUGS (12)
  1. OMEPRAZOLE. [Concomitant]
     Active Substance: OMEPRAZOLE
  2. NOVOLOG [Concomitant]
     Active Substance: INSULIN ASPART
  3. SILENOR [Concomitant]
     Active Substance: DOXEPIN HYDROCHLORIDE
  4. AMLODIPINE [Concomitant]
     Active Substance: AMLODIPINE BESYLATE
  5. NEURONTIN-GABAPENTIN [Concomitant]
  6. VALSARTAN. [Concomitant]
     Active Substance: VALSARTAN
  7. INVOKANA [Suspect]
     Active Substance: CANAGLIFLOZIN
     Indication: TYPE 2 DIABETES MELLITUS
     Dosage: 100 MG 1 PILL ONCE A DAY BY MOUTH
     Route: 048
     Dates: start: 201410, end: 20150113
  8. LANTUS [Concomitant]
     Active Substance: INSULIN GLARGINE
  9. ZIPRASIDONE HCL [Concomitant]
     Active Substance: ZIPRASIDONE HYDROCHLORIDE
  10. D3  1000 IU BONE HEALTH [Concomitant]
  11. ZEITA [Concomitant]
  12. HYDOXYZINE PAMOATE [Concomitant]
     Active Substance: HYDROXYZINE PAMOATE

REACTIONS (2)
  - Halo vision [None]
  - Fungal infection [None]

NARRATIVE: CASE EVENT DATE: 20150112
